FAERS Safety Report 10274865 (Version 2)
Quarter: 2014Q3

REPORT INFORMATION
  Report Type: Spontaneous
  Country: US (occurrence: US)
  Receive Date: 20140702
  Receipt Date: 20140702
  Transmission Date: 20150326
  Serious: No
  Sender: FDA-Public Use
  Company Number: US-AMGEN-USASP2014044371

PATIENT
  Age: 36 Year
  Sex: Male
  Weight: 92.97 kg

DRUGS (2)
  1. BUPROPION [Concomitant]
     Active Substance: BUPROPION
     Dosage: 7.5 MG, QD
     Route: 048
  2. ENBREL [Suspect]
     Active Substance: ETANERCEPT
     Indication: PSORIASIS
     Dosage: 50 MG, 2 TIMES/WK
     Route: 058
     Dates: start: 20030101, end: 20140124

REACTIONS (1)
  - Drug ineffective [Recovered/Resolved]
